FAERS Safety Report 7723054-3 (Version None)
Quarter: 2011Q3

REPORT INFORMATION
  Report Type: 
  Country: None (occurrence: None)
  Receive Date: 20110826
  Receipt Date: 20110812
  Transmission Date: 20111222
  Serious: Yes (Other)
  Sender: FDA-Public Use
  Company Number: 2011MA012059

PATIENT
  Age: 44 Year
  Sex: Male

DRUGS (5)
  1. BACLOFEN [Concomitant]
  2. FLUOXETINE [Suspect]
     Indication: DEPRESSION
     Dosage: 20 MG;  ;PO
     Route: 048
  3. INSULINGLARGINE [Concomitant]
  4. CODEINE [Concomitant]
  5. LOMOTIL [Concomitant]

REACTIONS (3)
  - CHEST PAIN [None]
  - DYSPEPSIA [None]
  - FALL [None]
